FAERS Safety Report 24677139 (Version 1)
Quarter: 2024Q4

REPORT INFORMATION
  Report Type: Spontaneous
  Country: US (occurrence: PH)
  Receive Date: 20241129
  Receipt Date: 20241129
  Transmission Date: 20250115
  Serious: Yes (Hospitalization, Other)
  Sender: ALKEM
  Company Number: None

PATIENT
  Age: 74 Year
  Sex: Female

DRUGS (9)
  1. MYCOPHENOLATE MOFETIL [Suspect]
     Active Substance: MYCOPHENOLATE MOFETIL
     Indication: Immunosuppressant drug therapy
     Dosage: 1 GRAM, BID
     Route: 065
  2. TACROLIMUS [Suspect]
     Active Substance: TACROLIMUS
     Indication: Immunosuppressant drug therapy
     Dosage: 8 MILLIGRAM, QD (EVERY 1 DAY)
     Route: 065
  3. METHYLPREDNISOLONE [Suspect]
     Active Substance: METHYLPREDNISOLONE
     Indication: Immunosuppressant drug therapy
     Dosage: UNK (TAPPER)
     Route: 065
  4. ALEMTUZUMAB [Suspect]
     Active Substance: ALEMTUZUMAB
     Indication: Immunosuppressant drug therapy
     Dosage: UNK
     Route: 065
  5. BELATACEPT [Suspect]
     Active Substance: BELATACEPT
     Indication: Immunosuppressant drug therapy
     Dosage: 5 MILLIGRAM/KILOGRAM, ONCE IN 2 WEEKS
     Route: 065
  6. DAPSONE [Concomitant]
     Active Substance: DAPSONE
     Indication: Antifungal prophylaxis
     Dosage: UNK
     Route: 065
  7. FLUCONAZOLE [Concomitant]
     Active Substance: FLUCONAZOLE
     Indication: Prophylaxis
     Dosage: UNK
     Route: 065
  8. SULFAMETHOXAZOLE\TRIMETHOPRIM [Concomitant]
     Active Substance: SULFAMETHOXAZOLE\TRIMETHOPRIM
     Indication: Prophylaxis
     Dosage: UNK
     Route: 065
  9. VALGANCICLOVIR [Concomitant]
     Active Substance: VALGANCICLOVIR
     Indication: Prophylaxis
     Dosage: UNK
     Route: 065

REACTIONS (10)
  - Disseminated tuberculosis [Recovering/Resolving]
  - Pneumonia influenzal [Recovering/Resolving]
  - Clostridium difficile colitis [Recovering/Resolving]
  - Urinary tract infection enterococcal [Recovering/Resolving]
  - Hydronephrosis [Recovering/Resolving]
  - Nephropathy toxic [Unknown]
  - Pyelonephritis fungal [Recovering/Resolving]
  - Klebsiella infection [Recovering/Resolving]
  - Systemic candida [Recovering/Resolving]
  - Abscess neck [Recovering/Resolving]
